FAERS Safety Report 5698946-X (Version None)
Quarter: 2008Q2

REPORT INFORMATION
  Report Type: 
  Country: None (occurrence: None)
  Receive Date: 20080408
  Receipt Date: 20060808
  Transmission Date: 20081010
  Serious: No
  Sender: FDA-Public Use
  Company Number: US-BAYER-US-2006-022572

PATIENT
  Age: 51 Year
  Sex: Female

DRUGS (1)
  1. ULTRAVIST 300 [Suspect]
     Indication: UROGRAM
     Route: 042
     Dates: start: 20060804, end: 20060804

REACTIONS (7)
  - BLOOD PRESSURE INCREASED [None]
  - BURNING SENSATION [None]
  - CHEST PAIN [None]
  - COUGH [None]
  - DYSPNOEA [None]
  - ERYTHEMA [None]
  - HYPERHIDROSIS [None]
